FAERS Safety Report 4405179-3 (Version None)
Quarter: 2004Q3

REPORT INFORMATION
  Report Type: 
  Country: None (occurrence: None)
  Receive Date: 20040723
  Receipt Date: 20040712
  Transmission Date: 20050211
  Serious: Yes (Hospitalization)
  Sender: FDA-Public Use
  Company Number: FR-BRISTOL-MYERS SQUIBB COMPANY-12645610

PATIENT
  Age: 37 Year
  Sex: Male

DRUGS (2)
  1. DAIVONEX [Suspect]
     Indication: DERMATOSIS
     Route: 061
     Dates: start: 20030329, end: 20030407
  2. PARFENAC [Suspect]
     Indication: DERMATOSIS
     Route: 061
     Dates: start: 20030407, end: 20030407

REACTIONS (1)
  - ECZEMA [None]
